FAERS Safety Report 5363706-6 (Version None)
Quarter: 2007Q2

REPORT INFORMATION
  Report Type: 
  Country: None (occurrence: None)
  Receive Date: 20070618
  Receipt Date: 20070618
  Transmission Date: 20071010
  Serious: Yes (Hospitalization)
  Sender: FDA-Public Use
  Company Number: None

PATIENT
  Age: 15 Year
  Sex: Female
  Weight: 52.6173 kg

DRUGS (2)
  1. ACETAMINOPHEN [Suspect]
     Indication: PYREXIA
  2. IBUPROFEN [Suspect]
     Indication: MALAISE

REACTIONS (6)
  - ALANINE AMINOTRANSFERASE INCREASED [None]
  - ASPARTATE AMINOTRANSFERASE INCREASED [None]
  - DEHYDRATION [None]
  - MONONUCLEOSIS HETEROPHILE TEST POSITIVE [None]
  - NAUSEA [None]
  - VOMITING [None]
